FAERS Safety Report 11700109 (Version 1)
Quarter: 2015Q4

REPORT INFORMATION
  Report Type: Spontaneous
  Country: None (occurrence: None)
  Receive Date: 20151104
  Receipt Date: 20151104
  Transmission Date: 20160304
  Serious: Yes (Disabling)
  Sender: FDA-Public Use
  Company Number: None

PATIENT
  Age: 24 Year
  Sex: Female

DRUGS (1)
  1. DEPO-PROVERA [Suspect]
     Active Substance: MEDROXYPROGESTERONE ACETATE
     Dosage: EVERY 2 MONTHS INTO THE MUSCLE
     Route: 030

REACTIONS (3)
  - Muscular weakness [None]
  - Movement disorder [None]
  - Gait disturbance [None]

NARRATIVE: CASE EVENT DATE: 20151103
